FAERS Safety Report 11297377 (Version 1)
Quarter: 2015Q3

REPORT INFORMATION
  Report Type: Spontaneous
  Country: US (occurrence: US)
  Receive Date: 20150722
  Receipt Date: 20150722
  Transmission Date: 20151125
  Serious: No
  Sender: FDA-Public Use
  Company Number: US-ELI_LILLY_AND_COMPANY-US200804000440

PATIENT
  Age: 53 Year
  Sex: Female

DRUGS (14)
  1. HUMATROPE [Suspect]
     Active Substance: SOMATROPIN
     Dosage: 2 MG, DAILY (1/D)
     Dates: start: 2006, end: 2006
  2. HUMATROPE [Suspect]
     Active Substance: SOMATROPIN
     Dosage: 0.6 MG, DAILY (1/D)
     Dates: start: 20070119, end: 20070731
  3. HUMATROPE [Suspect]
     Active Substance: SOMATROPIN
     Dosage: 0.6 MG, DAILY (1/D)
     Dates: start: 20080327
  4. HUMATROPE [Suspect]
     Active Substance: SOMATROPIN
     Dosage: 0.5 MG, DAILY (1/D)
     Dates: start: 20080318
  5. HUMATROPE [Suspect]
     Active Substance: SOMATROPIN
     Dosage: 0.6 MG, QOD
     Dates: start: 20070801, end: 20071003
  6. HUMATROPE [Suspect]
     Active Substance: SOMATROPIN
     Dosage: 0.6 MG, DAILY (1/D)
     Dates: start: 20060815, end: 20061016
  7. HUMATROPE [Suspect]
     Active Substance: SOMATROPIN
     Dosage: 1 MG, DAILY (1/D)
     Dates: start: 20061130, end: 20070118
  8. HUMATROPE [Suspect]
     Active Substance: SOMATROPIN
     Dosage: 0.8 MG, DAILY (1/D)
     Dates: start: 20071004, end: 20071106
  9. HUMATROPE [Suspect]
     Active Substance: SOMATROPIN
     Indication: GROWTH HORMONE DEFICIENCY
     Dosage: 0.4 MG, DAILY (1/D)
     Dates: start: 20060623, end: 20060814
  10. HUMATROPE [Suspect]
     Active Substance: SOMATROPIN
     Dosage: 0.5 MG, DAILY (1/D)
     Dates: start: 20080116, end: 20080326
  11. HUMATROPE [Suspect]
     Active Substance: SOMATROPIN
     Dosage: 0.6 MG, QOD
     Dates: start: 20071107, end: 20080115
  12. HUMATROPE [Suspect]
     Active Substance: SOMATROPIN
     Dosage: 0.8 MG, QOD
     Dates: start: 20071107, end: 20080115
  13. HUMATROPE [Suspect]
     Active Substance: SOMATROPIN
     Dosage: 0.8 MG, DAILY (1/D)
     Dates: start: 20061017, end: 20061129
  14. HUMATROPE [Suspect]
     Active Substance: SOMATROPIN
     Dosage: 0.8 MG, QOD
     Dates: start: 20070801, end: 20071003

REACTIONS (10)
  - Fatigue [Unknown]
  - Memory impairment [Unknown]
  - Muscle tightness [Unknown]
  - Pain [Unknown]
  - Carpal tunnel syndrome [Recovering/Resolving]
  - Incorrect dose administered [Recovered/Resolved]
  - Hypoaesthesia [Recovering/Resolving]
  - Visual acuity reduced [Unknown]
  - Arthralgia [Recovering/Resolving]
  - Myalgia [Recovering/Resolving]

NARRATIVE: CASE EVENT DATE: 2006
